FAERS Safety Report 8613523-6 (Version None)
Quarter: 2012Q3

REPORT INFORMATION
  Report Type: 
  Country: None (occurrence: None)
  Receive Date: 20120823
  Receipt Date: 20120807
  Transmission Date: 20120928
  Serious: Yes (Hospitalization, Other)
  Sender: FDA-Public Use
  Company Number: JP-MERCK-2012SP017012

PATIENT

DRUGS (20)
  1. PEGINTERFERON ALFA-2B [Suspect]
     Dosage: 0.3 MICROGRAM PER KILOGRAM, QW
     Route: 058
     Dates: end: 20120315
  2. TELAVIC [Suspect]
     Dosage: 1500 MG, QD
     Route: 048
     Dates: start: 20120203, end: 20120223
  3. REBETOL [Suspect]
     Dosage: 400 MG, QD
     Route: 048
     Dates: start: 20120203, end: 20120216
  4. TELAVIC [Suspect]
     Dosage: UNK, QD
     Route: 048
     Dates: end: 20120304
  5. PEGINTERFERON ALFA-2B [Suspect]
     Dosage: 0.96 MICROGRAM PER KILOGRAM, QW
     Route: 058
     Dates: start: 20120216, end: 20120216
  6. REBETOL [Suspect]
     Dosage: 200 MG, QD
     Route: 048
     Dates: end: 20120531
  7. URSO 250 [Concomitant]
     Indication: HEPATITIS C
     Dosage: FORMULATION: POR
     Route: 048
  8. PEGINTERFERON ALFA-2B [Suspect]
     Dosage: 0.8 MICROGRAM PER KILOGRAM, QW
     Route: 058
     Dates: start: 20120405, end: 20120426
  9. ANTIVIRAL (UNSPECIFIED) [Suspect]
     Indication: HEPATITIS C
     Dosage: 2250 MG, QD
     Route: 048
     Dates: start: 20120127, end: 20120202
  10. DEPAS [Suspect]
     Dosage: UNK, QD
     Route: 048
     Dates: start: 20120524
  11. PEGINTERFERON ALFA-2B [Suspect]
     Dosage: 0.6 MICROGRAM PER KILOGRAM, UNK
     Route: 058
     Dates: start: 20120510, end: 20120510
  12. REBETOL [Suspect]
     Indication: HEPATITIS C
     Dosage: 600 MG, QD
     Route: 048
     Dates: start: 20120127, end: 20120202
  13. REBETOL [Suspect]
     Dosage: 200 MG, QD
     Route: 048
     Dates: start: 20120217, end: 20120223
  14. ANTIVIRAL (UNSPECIFIED) [Suspect]
     Dosage: 1500 MG, QD
     Route: 048
     Dates: start: 20120203, end: 20120223
  15. PEGINTERFERON ALFA-2B [Suspect]
     Dosage: 0.32 MICROGRAM PER KILOGRAM, QW
     Route: 058
     Dates: start: 20120223
  16. TELAVIC [Suspect]
     Indication: HEPATITIS C
     Dosage: 2250 MG, QD
     Route: 048
     Dates: start: 20120127, end: 20120202
  17. PEGINTERFERON ALFA-2B [Suspect]
     Dosage: 0.6 MICROGRAM PER KILOGRAM, UNK
     Route: 058
     Dates: start: 20120322, end: 20120329
  18. PEGINTERFERON ALFA-2B [Suspect]
     Indication: HEPATITIS C
     Dosage: 1.3 MICROGRAM PER KILOGRAM, QW
     Route: 058
     Dates: start: 20120117, end: 20120209
  19. TELAVIC [Suspect]
     Dosage: 750 MG, QD
     Route: 048
     Dates: start: 20120405, end: 20120419
  20. DEPAS [Suspect]
     Dosage: UNK
     Route: 048
     Dates: start: 20120510, end: 20120524

REACTIONS (2)
  - DECREASED APPETITE [None]
  - LOSS OF CONSCIOUSNESS [None]
